FAERS Safety Report 8228481-6 (Version None)
Quarter: 2012Q1

REPORT INFORMATION
  Report Type: 
  Country: None (occurrence: None)
  Receive Date: 20120322
  Receipt Date: 20110601
  Transmission Date: 20120608
  Serious: No
  Sender: FDA-Public Use
  Company Number: US-BRISTOL-MYERS SQUIBB COMPANY-15796121

PATIENT
  Sex: Male

DRUGS (4)
  1. ERBITUX [Suspect]
     Indication: COLORECTAL CANCER
  2. OXALIPLATIN [Suspect]
     Indication: COLORECTAL CANCER
  3. FLUOROURACIL [Suspect]
     Indication: COLORECTAL CANCER
  4. LEUCOVORIN CALCIUM [Suspect]
     Indication: COLORECTAL CANCER

REACTIONS (2)
  - OCULAR HYPERAEMIA [None]
  - RASH [None]
